FAERS Safety Report 7135028-4 (Version None)
Quarter: 2010Q4

REPORT INFORMATION
  Report Type: 
  Country: None (occurrence: None)
  Receive Date: 20101203
  Receipt Date: 20101112
  Transmission Date: 20110411
  Serious: No
  Sender: FDA-Public Use
  Company Number: US-ALLERGAN-1014694US

PATIENT
  Age: 52 Year
  Sex: Female

DRUGS (1)
  1. ACZONE [Suspect]
     Indication: WOUND
     Dosage: 1 DF, BID
     Route: 061
     Dates: start: 20101008, end: 20101020

REACTIONS (1)
  - WOUND TREATMENT [None]
